FAERS Safety Report 7285022-8 (Version None)
Quarter: 2011Q1

REPORT INFORMATION
  Report Type: 
  Country: None (occurrence: None)
  Receive Date: 20110204
  Receipt Date: 20110204
  Transmission Date: 20110831
  Serious: No
  Sender: FDA-Public Use
  Company Number: None

PATIENT
  Sex: Female
  Weight: 88.4514 kg

DRUGS (2)
  1. LEVOTHYROXINE SODIUM [Suspect]
     Dosage: 1 TAB QD ORALLY (PT ONLY TOOK THEM FOR 1 DAY IN 1980S)
     Route: 048
  2. AMLODIPINE [Suspect]
     Dosage: 1 TAB QD ORALLY (PT ONLY TOOK THEM FOR 1 DAY IN 1980S)
     Route: 048

REACTIONS (2)
  - SCLERODERMA [None]
  - PRODUCT SUBSTITUTION ISSUE [None]
